FAERS Safety Report 7149620-4 (Version None)
Quarter: 2010Q4

REPORT INFORMATION
  Report Type: 
  Country: None (occurrence: None)
  Receive Date: 20101209
  Receipt Date: 20101124
  Transmission Date: 20110411
  Serious: Yes (Other)
  Sender: FDA-Public Use
  Company Number: JP-AMGEN-QUU429616

PATIENT

DRUGS (24)
  1. REGPARA [Suspect]
     Indication: RENAL FAILURE CHRONIC
     Dosage: 25 MG, QD
     Route: 048
     Dates: start: 20090831, end: 20100615
  2. ARANESP [Concomitant]
     Indication: RENAL FAILURE CHRONIC
     Dosage: 60 A?G, UNK
     Route: 042
  3. MAXACALCITOL [Concomitant]
     Dosage: 10 A?G, UNK
     Route: 042
  4. CARVEDILOL [Concomitant]
     Dosage: 10 MG, QD
     Route: 048
     Dates: start: 20090228
  5. VALSARTAN [Concomitant]
     Dosage: 80 MG, UNK
     Route: 048
  6. AMLODIPINE BESYLATE [Concomitant]
     Dosage: 10 MG, UNK
     Route: 048
  7. GASTER [Concomitant]
     Dosage: 10 MG, QD
     Route: 048
     Dates: start: 20090228
  8. CARVEDILOL [Concomitant]
  9. FAMOTIDINE [Concomitant]
  10. CALCIUM CARBONATE [Concomitant]
  11. ALFACALCIDOL [Concomitant]
  12. CALCITRIOL [Concomitant]
  13. IRON [Concomitant]
     Dosage: 40 MG, 3 TIMES/WK
     Route: 042
     Dates: start: 20100203, end: 20100301
  14. OXAROL [Concomitant]
     Dosage: 10 A?G, 3 TIMES/WK
     Route: 042
     Dates: start: 20080912, end: 20100730
  15. OXAROL [Concomitant]
     Dosage: 5 A?G, UNK
     Dates: start: 20100731, end: 20100813
  16. NESP [Concomitant]
     Dosage: 60 A?G, QWK
     Route: 042
     Dates: start: 20090225, end: 20100630
  17. NESP [Concomitant]
     Dosage: 40 A?G, QWK
     Route: 042
     Dates: start: 20100707, end: 20100922
  18. DIOVAN [Concomitant]
     Dosage: 80 MG, QD
     Route: 048
     Dates: start: 20090909
  19. AMLODIN [Concomitant]
     Dosage: 10 MG, UNK
     Route: 048
     Dates: start: 20100421
  20. CALTAN [Concomitant]
     Dosage: 1 G, TID
     Route: 048
     Dates: start: 20100618, end: 20100630
  21. CALTAN [Concomitant]
     Dosage: 1.5 UNK, TID
     Route: 048
     Dates: start: 20100630, end: 20100728
  22. CALTAN [Concomitant]
     Dosage: 1 UNK, TID
     Route: 048
     Dates: start: 20100728, end: 20100811
  23. ALFAROL [Concomitant]
     Dosage: 0.5 A?G, QD
     Dates: start: 20100623, end: 20100630
  24. ROCALTROL [Concomitant]
     Dosage: 1 A?G, QD
     Route: 048
     Dates: start: 20100701, end: 20100811

REACTIONS (2)
  - HYPOCALCAEMIA [None]
  - TETANY [None]
